FAERS Safety Report 9882721 (Version 2)
Quarter: 2014Q1

REPORT INFORMATION
  Report Type: Report from Study
  Country: BR (occurrence: BR)
  Receive Date: 20140207
  Receipt Date: 20140207
  Transmission Date: 20141002
  Serious: Yes (Disabling, Other)
  Sender: FDA-Public Use
  Company Number: PHHY2013BR140422

PATIENT
  Sex: Female
  Weight: 60 kg

DRUGS (2)
  1. FORASEQ [Suspect]
     Indication: BRONCHITIS
     Dosage: 2 DF, DAILY (1 INHALATION IN MORNING AND 1 INHALATION AT NIGHT)
     Route: 055
     Dates: start: 1995
  2. CALCIUM [Concomitant]
     Indication: OSTEOPOROSIS
     Dosage: UNK, DAILY
     Dates: start: 1995

REACTIONS (5)
  - Cerebrovascular accident [Recovering/Resolving]
  - Stress [Recovering/Resolving]
  - Effusion [Recovering/Resolving]
  - Dyspnoea [Not Recovered/Not Resolved]
  - Memory impairment [Unknown]
